FAERS Safety Report 13491113 (Version 1)
Quarter: 2017Q2

REPORT INFORMATION
  Report Type: Spontaneous
  Country: CH (occurrence: CH)
  Receive Date: 20170427
  Receipt Date: 20170427
  Transmission Date: 20170830
  Serious: Yes (Other)
  Sender: FDA-Public Use
  Company Number: CH-BAYER-2017-075214

PATIENT
  Age: 33 Year
  Sex: Female

DRUGS (3)
  1. PREDNISOLON AGEPHA [Suspect]
     Active Substance: PREDNISOLONE
     Indication: ANTIPHOSPHOLIPID SYNDROME
     Dosage: 20 MG, QD
  2. ASPIRIN CARDIO 100 MG [Suspect]
     Active Substance: ASPIRIN
     Indication: ANTIPHOSPHOLIPID SYNDROME
     Dosage: 100 MG, QD
  3. CLEXANE [Suspect]
     Active Substance: ENOXAPARIN SODIUM
     Indication: ANTIPHOSPHOLIPID SYNDROME
     Dosage: 40 MG, QD

REACTIONS (2)
  - Exposure during pregnancy [Recovered/Resolved]
  - Abortion incomplete [Recovered/Resolved]

NARRATIVE: CASE EVENT DATE: 20160404
